FAERS Safety Report 11552433 (Version 1)
Quarter: 2015Q3

REPORT INFORMATION
  Report Type: Spontaneous
  Country: US (occurrence: None)
  Receive Date: 20150924
  Receipt Date: 20150924
  Transmission Date: 20151125
  Serious: Yes (Hospitalization, Other)
  Sender: FDA-Public Use
  Company Number: None

PATIENT
  Age: 53 Year
  Sex: Male
  Weight: 99.79 kg

DRUGS (3)
  1. HYDRALAZINE [Suspect]
     Active Substance: HYDRALAZINE HYDROCHLORIDE
     Indication: HYPERTENSION
     Route: 048
  2. BYSTOLIC [Concomitant]
     Active Substance: NEBIVOLOL HYDROCHLORIDE
  3. AMLODIPINE 10 MG [Suspect]
     Active Substance: AMLODIPINE BESYLATE
     Indication: HYPERTENSION
     Dosage: 1 PILL
     Route: 048

REACTIONS (12)
  - Hypertension [None]
  - Scar [None]
  - Pruritus [None]
  - Peripheral swelling [None]
  - Erythema [None]
  - Pain in extremity [None]
  - Feeling abnormal [None]
  - Swelling face [None]
  - Soft tissue disorder [None]
  - Lip swelling [None]
  - Arthralgia [None]
  - Rash pruritic [None]

NARRATIVE: CASE EVENT DATE: 20150923
